FAERS Safety Report 21239163 (Version 1)
Quarter: 2022Q3

REPORT INFORMATION
  Report Type: Spontaneous
  Country: CN (occurrence: None)
  Receive Date: 20220822
  Receipt Date: 20220822
  Transmission Date: 20221027
  Serious: Yes (Other)
  Sender: FDA-Public Use
  Company Number: CN-ROCHE-3161037

PATIENT
  Age: 52 Year
  Sex: Male
  Weight: 100 kg

DRUGS (2)
  1. GAZYVA [Suspect]
     Active Substance: OBINUTUZUMAB
     Indication: Chronic lymphocytic leukaemia
     Route: 042
     Dates: start: 20220618
  2. BENDAMUSTINE [Concomitant]
     Active Substance: BENDAMUSTINE
     Indication: Chronic lymphocytic leukaemia
     Dates: start: 20220618

REACTIONS (4)
  - Myelosuppression [Unknown]
  - Syncope [Unknown]
  - Platelet count decreased [Unknown]
  - Off label use [Unknown]
